FAERS Safety Report 7447384-8 (Version None)
Quarter: 2011Q2

REPORT INFORMATION
  Report Type: 
  Country: None (occurrence: None)
  Receive Date: 20110429
  Receipt Date: 20110203
  Transmission Date: 20111010
  Serious: No
  Sender: FDA-Public Use
  Company Number: US-ASTRAZENECA-2011SE06919

PATIENT
  Age: 73 Year
  Sex: Female

DRUGS (1)
  1. NEXIUM [Suspect]
     Dosage: TWO TIMES A DAY
     Route: 048

REACTIONS (3)
  - HYPERHIDROSIS [None]
  - BURNING SENSATION [None]
  - GASTROOESOPHAGEAL REFLUX DISEASE [None]
